FAERS Safety Report 5700310-1 (Version None)
Quarter: 2008Q2

REPORT INFORMATION
  Report Type: 
  Country: None (occurrence: None)
  Receive Date: 20080410
  Receipt Date: 20080407
  Transmission Date: 20081010
  Serious: Yes (Hospitalization)
  Sender: FDA-Public Use
  Company Number: B0506628A

PATIENT
  Age: 59 Year
  Sex: Male

DRUGS (3)
  1. MALARONE [Suspect]
     Indication: MALARIA PROPHYLAXIS
     Dosage: 23TAB CUMULATIVE DOSE
     Route: 048
  2. RAMIPRIL [Concomitant]
  3. SERC [Concomitant]

REACTIONS (4)
  - DIZZINESS [None]
  - DROP ATTACKS [None]
  - FEELING ABNORMAL [None]
  - VISION BLURRED [None]
